FAERS Safety Report 19875947 (Version 1)
Quarter: 2021Q3

REPORT INFORMATION
  Report Type: Report from Study
  Country: US (occurrence: US)
  Receive Date: 20210923
  Receipt Date: 20210923
  Transmission Date: 20211014
  Serious: Yes (Hospitalization, Other)
  Sender: FDA-Public Use
  Company Number: US-BRISTOL-MYERS SQUIBB COMPANY-BMS-2021-094604

PATIENT
  Age: 46 Year
  Sex: Male
  Weight: 115.3 kg

DRUGS (2)
  1. NIVOLUMAB [Suspect]
     Active Substance: NIVOLUMAB
     Indication: SOFT TISSUE NEOPLASM
     Dosage: 480 MILLIGRAM
     Route: 065
     Dates: start: 20210324, end: 20210811
  2. PACLITAXEL. [Suspect]
     Active Substance: PACLITAXEL
     Indication: SOFT TISSUE NEOPLASM
     Dosage: 576 MILLIGRAM
     Route: 065
     Dates: start: 20210324, end: 20210825

REACTIONS (2)
  - COVID-19 [Unknown]
  - Syncope [Not Recovered/Not Resolved]

NARRATIVE: CASE EVENT DATE: 20210827
